FAERS Safety Report 8492480-X (Version None)
Quarter: 2012Q2

REPORT INFORMATION
  Report Type: 
  Country: None (occurrence: None)
  Receive Date: 20120620
  Receipt Date: 20120605
  Transmission Date: 20120825
  Serious: Yes (Hospitalization, Other)
  Sender: FDA-Public Use
  Company Number: 2012031025

PATIENT
  Age: 40 Year
  Sex: Male

DRUGS (4)
  1. PRIVIGEN [Suspect]
     Indication: HYPOGAMMAGLOBULINAEMIA
     Dosage: 35 G TOTAL, 5 G (50 ML), 35 G TOTAL, 10 G (100 ML)
     Route: 042
     Dates: start: 20120202, end: 20120202
  2. PRIVIGEN [Suspect]
     Indication: SEPSIS
     Dosage: 35 G TOTAL, 5 G (50 ML), 35 G TOTAL, 10 G (100 ML)
     Route: 042
     Dates: start: 20120202, end: 20120202
  3. PRIVIGEN [Suspect]
     Indication: SECONDARY IMMUNODEFICIENCY
     Dosage: 35 G TOTAL, 5 G (50 ML), 35 G TOTAL, 10 G (100 ML)
     Route: 042
     Dates: start: 20120202, end: 20120202
  4. PRIVIGEN [Suspect]

REACTIONS (9)
  - TACHYCARDIA [None]
  - ELECTROCARDIOGRAM T WAVE ABNORMAL [None]
  - MYOCARDIAL INFARCTION [None]
  - DRUG HYPERSENSITIVITY [None]
  - CHILLS [None]
  - TACHYPNOEA [None]
  - HYPOXIA [None]
  - PYREXIA [None]
  - OFF LABEL USE [None]
